FAERS Safety Report 9441643 (Version 1)
Quarter: 2013Q3

REPORT INFORMATION
  Report Type: Spontaneous
  Country: US (occurrence: US)
  Receive Date: 20130806
  Receipt Date: 20130806
  Transmission Date: 20140515
  Serious: No
  Sender: FDA-Public Use
  Company Number: US-BIOGENIDEC-2013BI062206

PATIENT
  Age: 55 Year
  Sex: Female

DRUGS (4)
  1. AVONEX [Suspect]
     Indication: MULTIPLE SCLEROSIS
     Route: 030
     Dates: start: 20100604, end: 20100723
  2. AVONEX [Suspect]
     Indication: MULTIPLE SCLEROSIS
     Route: 030
     Dates: start: 20100723, end: 20110716
  3. AVONEX [Suspect]
     Indication: MULTIPLE SCLEROSIS
     Route: 030
  4. AVONEX [Suspect]
     Indication: MULTIPLE SCLEROSIS
     Route: 030
     Dates: start: 20120622

REACTIONS (14)
  - Phobia [Unknown]
  - Cognitive disorder [Unknown]
  - Fear of injection [Unknown]
  - Paralysis [Not Recovered/Not Resolved]
  - Cough [Unknown]
  - Choking [Recovered/Resolved]
  - Bronchitis [Unknown]
  - General symptom [Unknown]
  - Cerebral atrophy [Unknown]
  - Concussion [Not Recovered/Not Resolved]
  - Multiple sclerosis relapse [Unknown]
  - Dyspnoea [Unknown]
  - Dizziness [Not Recovered/Not Resolved]
  - Headache [Not Recovered/Not Resolved]
